FAERS Safety Report 18809462 (Version 1)
Quarter: 2021Q1

REPORT INFORMATION
  Report Type: Spontaneous
  Country: CA (occurrence: CA)
  Receive Date: 20210129
  Receipt Date: 20210129
  Transmission Date: 20210419
  Serious: Yes (Other)
  Sender: FDA-Public Use
  Company Number: CA-PURDUE-USA-2020-0201044

PATIENT
  Sex: Male

DRUGS (1)
  1. OXYCONTIN [Suspect]
     Active Substance: OXYCODONE HYDROCHLORIDE
     Indication: PAIN
     Dosage: UNK
     Route: 048

REACTIONS (8)
  - Drug dependence [Unknown]
  - Brain injury [Unknown]
  - Amnesia [Unknown]
  - Loss of consciousness [Unknown]
  - Dyspnoea [Unknown]
  - Depression [Unknown]
  - Overdose [Unknown]
  - Learning disability [Unknown]

NARRATIVE: CASE EVENT DATE: 2015
